FAERS Safety Report 14363851 (Version 8)
Quarter: 2021Q4

REPORT INFORMATION
  Report Type: Spontaneous
  Country: US (occurrence: US)
  Receive Date: 20180108
  Receipt Date: 20211124
  Transmission Date: 20220303
  Serious: No
  Sender: FDA-Public Use
  Company Number: US-PFIZER INC-2018007328

PATIENT
  Age: 47 Year
  Sex: Female
  Weight: 50.35 kg

DRUGS (2)
  1. LYRICA [Suspect]
     Active Substance: PREGABALIN
     Indication: Fibromyalgia
     Dosage: 150 MG, 3X/DAY
     Route: 048
     Dates: start: 20170131
  2. LYRICA [Suspect]
     Active Substance: PREGABALIN
     Dosage: 150 MG, 2X/DAY (TAKING THE MEDICATION ONLY 2 TIMES A DAY INSTEAD OF 3 TIMES A DAY)

REACTIONS (5)
  - Intentional product misuse [Unknown]
  - Hypoaesthesia [Recovered/Resolved]
  - Therapeutic response unexpected [Unknown]
  - Memory impairment [Unknown]
  - Hemiplegic migraine [Unknown]

NARRATIVE: CASE EVENT DATE: 20170801
